FAERS Safety Report 20210487 (Version 4)
Quarter: 2022Q1

REPORT INFORMATION
  Report Type: Report from Study
  Country: MX (occurrence: MX)
  Receive Date: 20211221
  Receipt Date: 20220330
  Transmission Date: 20220423
  Serious: Yes (Disabling)
  Sender: FDA-Public Use
  Company Number: MX-NOVARTISPH-NVSC2021MX272190

PATIENT
  Age: 51 Year
  Sex: Male
  Weight: 70 kg

DRUGS (4)
  1. ENTRESTO [Suspect]
     Active Substance: SACUBITRIL\VALSARTAN
     Indication: Cardiac failure
     Dosage: 200 MG
     Route: 048
  2. DICLOFENAC [Suspect]
     Active Substance: DICLOFENAC
     Indication: Product used for unknown indication
     Dosage: UNK
     Route: 065
  3. GABAPENTIN [Suspect]
     Active Substance: GABAPENTIN
     Indication: Product used for unknown indication
     Dosage: UNK
     Route: 065
  4. PREGABALIN [Suspect]
     Active Substance: PREGABALIN
     Indication: Product used for unknown indication
     Dosage: UNK
     Route: 065

REACTIONS (12)
  - Somnolence [Not Recovered/Not Resolved]
  - Dizziness [Recovering/Resolving]
  - Pain [Unknown]
  - Visual impairment [Not Recovered/Not Resolved]
  - Blood cholesterol increased [Unknown]
  - Agitation [Unknown]
  - Pain in extremity [Unknown]
  - Blood triglycerides increased [Unknown]
  - Weight decreased [Unknown]
  - Hypotension [Recovering/Resolving]
  - Fatigue [Recovering/Resolving]
  - Drug ineffective [Recovering/Resolving]

NARRATIVE: CASE EVENT DATE: 20201001
